FAERS Safety Report 10403911 (Version 3)
Quarter: 2014Q3

REPORT INFORMATION
  Report Type: Report from Study
  Country: JP (occurrence: JP)
  Receive Date: 20140822
  Receipt Date: 20140929
  Transmission Date: 20150326
  Serious: Yes (Hospitalization)
  Sender: FDA-Public Use
  Company Number: JP-AMGEN-JPNCT2014060049

PATIENT
  Age: 73 Year
  Sex: Female
  Weight: 44 kg

DRUGS (19)
  1. BLINDED DENOSUMAB [Suspect]
     Active Substance: DENOSUMAB
     Indication: OSTEOPOROSIS POSTMENOPAUSAL
     Dosage: UNK
     Route: 058
     Dates: start: 20130523, end: 20140423
  2. CALCIUM [Concomitant]
     Active Substance: CALCIUM
     Dosage: 383 MG, UNK
     Route: 048
     Dates: start: 20130821
  3. ADALAT [Concomitant]
     Active Substance: NIFEDIPINE
     Dosage: 20 MG, UNK
     Route: 048
     Dates: start: 20110901
  4. PLACEBO [Suspect]
     Active Substance: UNSPECIFIED INGREDIENT
     Indication: OSTEOPOROSIS POSTMENOPAUSAL
     Dosage: UNK
     Route: 058
     Dates: start: 20130523, end: 20140423
  5. MOHRUS [Concomitant]
     Active Substance: KETOPROFEN
     Dosage: 40 MG, UNK
     Route: 062
     Dates: start: 20110802
  6. HIRUDOID                           /00723701/ [Concomitant]
     Dosage: 1 UNK, UNK
     Route: 061
     Dates: start: 20131225
  7. LANTUS [Concomitant]
     Active Substance: INSULIN GLARGINE
     Dosage: 11 IU, UNK
     Route: 058
     Dates: start: 20140326, end: 20140430
  8. BLINDED AMG 785 [Suspect]
     Active Substance: ROMOSOZUMAB
     Indication: OSTEOPOROSIS POSTMENOPAUSAL
     Dosage: UNK
     Route: 058
     Dates: start: 20130523, end: 20140423
  9. EQUA [Concomitant]
     Active Substance: VILDAGLIPTIN
     Dosage: 50 MG, UNK
     Route: 048
     Dates: start: 20131101
  10. MAGLAX [Concomitant]
     Active Substance: MAGNESIUM OXIDE
     Dosage: 300 MG, UNK
     Route: 048
     Dates: start: 20131101
  11. BASEN                              /01290601/ [Concomitant]
     Active Substance: VOGLIBOSE
     Dosage: 0.3 MG, UNK
     Route: 048
     Dates: start: 2007
  12. DENOSUMAB [Suspect]
     Active Substance: DENOSUMAB
     Indication: OSTEOPOROSIS POSTMENOPAUSAL
     Dosage: 1 ML, UNK
     Route: 058
     Dates: start: 20140530
  13. YAKUBAN [Concomitant]
     Active Substance: FLURBIPROFEN
     Dosage: 20 MG, UNK
     Route: 062
     Dates: start: 20101228
  14. TAKEPRON [Concomitant]
     Active Substance: LANSOPRAZOLE
     Dosage: 15 MG, UNK
     Route: 048
     Dates: start: 20140124
  15. METHYCOOL [Concomitant]
     Active Substance: METHYLCOBALAMIN
     Dosage: 500 MUG, UNK
     Route: 048
     Dates: start: 2007
  16. DEPAS [Concomitant]
     Active Substance: ETIZOLAM
     Dosage: 0.5 MG, UNK
     Route: 048
     Dates: start: 2007
  17. FLOMOX                             /01418603/ [Concomitant]
     Dosage: 100 MG, UNK
     Route: 048
     Dates: start: 20140719, end: 20140721
  18. VITAMIN D                          /00107901/ [Concomitant]
     Active Substance: ERGOCALCIFEROL
     Dosage: 330 IU, UNK
     Route: 048
     Dates: start: 20130821
  19. BIO-THREE [Concomitant]
     Active Substance: HERBALS
     Dosage: 1 UNK, UNK
     Route: 048
     Dates: start: 20131101

REACTIONS (1)
  - Diarrhoea [Recovered/Resolved]

NARRATIVE: CASE EVENT DATE: 20140728
